FAERS Safety Report 4424685-9 (Version None)
Quarter: 2004Q3

REPORT INFORMATION
  Report Type: 
  Country: None (occurrence: None)
  Receive Date: 20040809
  Receipt Date: 20040624
  Transmission Date: 20050211
  Serious: Yes (Life-Threatening, Hospitalization)
  Sender: FDA-Public Use
  Company Number: M2004.1023

PATIENT
  Age: 27 Year
  Sex: Male

DRUGS (1)
  1. VERAPAMIL [Suspect]
     Dosage: 100 X 240 MG/SINGLE OD W/SUICIDAL INTENT

REACTIONS (7)
  - ACUTE RESPIRATORY DISTRESS SYNDROME [None]
  - ATRIOVENTRICULAR BLOCK COMPLETE [None]
  - BRADYCARDIA [None]
  - CONFUSIONAL STATE [None]
  - DYSPNOEA [None]
  - HYPOTENSION [None]
  - INTENTIONAL OVERDOSE [None]
